FAERS Safety Report 7334593-1 (Version None)
Quarter: 2011Q1

REPORT INFORMATION
  Report Type: 
  Country: None (occurrence: None)
  Receive Date: 20110307
  Receipt Date: 20101206
  Transmission Date: 20110831
  Serious: No
  Sender: FDA-Public Use
  Company Number: A0898003A

PATIENT
  Age: 42 Year
  Sex: Female

DRUGS (3)
  1. METFORMIN [Concomitant]
  2. REQUIP [Suspect]
     Indication: RESTLESS LEGS SYNDROME
     Dosage: 1MG PER DAY
     Route: 048
     Dates: start: 20100624
  3. NEXIUM [Concomitant]

REACTIONS (1)
  - DRUG INEFFECTIVE [None]
